FAERS Safety Report 10692970 (Version 1)
Quarter: 2015Q1

REPORT INFORMATION
  Report Type: Spontaneous
  Country: US (occurrence: None)
  Receive Date: 20150105
  Receipt Date: 20150105
  Transmission Date: 20150720
  Serious: No
  Sender: FDA-Public Use
  Company Number: None

PATIENT
  Age: 3 Year
  Sex: Male
  Weight: 15.42 kg

DRUGS (1)
  1. MIRALAX [Suspect]
     Active Substance: POLYETHYLENE GLYCOL 3350
     Indication: CONSTIPATION
     Dosage: 1 PACKET ONCE DAILY TAKEN BY MOUTH
     Route: 048
     Dates: start: 20131218, end: 20131223

REACTIONS (2)
  - Constipation [None]
  - Dehydration [None]

NARRATIVE: CASE EVENT DATE: 20131218
